FAERS Safety Report 11761467 (Version 3)
Quarter: 2015Q4

REPORT INFORMATION
  Report Type: Spontaneous
  Country: JP (occurrence: JP)
  Receive Date: 20151120
  Receipt Date: 20151210
  Transmission Date: 20160304
  Serious: Yes (Hospitalization, Other)
  Sender: FDA-Public Use
  Company Number: JP-GLAXOSMITHKLINE-JP2015JPN163036

PATIENT
  Sex: Female

DRUGS (2)
  1. REQUIP [Suspect]
     Active Substance: ROPINIROLE HYDROCHLORIDE
     Indication: PARKINSON^S DISEASE
     Dosage: UNK
     Route: 048
     Dates: start: 20151111, end: 20151112
  2. MIRAPEX-LA [Concomitant]
     Dosage: UNK

REACTIONS (4)
  - Suicide attempt [Unknown]
  - Agitation [Unknown]
  - Abasia [Unknown]
  - Parkinson^s disease [Unknown]

NARRATIVE: CASE EVENT DATE: 20151111
